FAERS Safety Report 8540653-X (Version None)
Quarter: 2012Q3

REPORT INFORMATION
  Report Type: 
  Country: None (occurrence: None)
  Receive Date: 20120726
  Receipt Date: 20120717
  Transmission Date: 20120928
  Serious: Yes (Other)
  Sender: FDA-Public Use
  Company Number: US-MPIJNJ-2012-05028

PATIENT
  Age: 55 Year
  Sex: Female

DRUGS (1)
  1. VELCADE [Suspect]
     Indication: TRANSPLANT REJECTION
     Dosage: 1.3 MG/M2, CYCLIC

REACTIONS (1)
  - TRANSPLANT REJECTION [None]
